FAERS Safety Report 22147603 (Version 2)
Quarter: 2023Q1

REPORT INFORMATION
  Report Type: Spontaneous
  Country: US (occurrence: US)
  Receive Date: 20230328
  Receipt Date: 20230331
  Transmission Date: 20230418
  Serious: No
  Sender: FDA-Public Use
  Company Number: US-PFIZER INC-202300129831

PATIENT
  Age: 72 Year
  Sex: Female
  Weight: 63.5 kg

DRUGS (2)
  1. PAXLOVID [Suspect]
     Active Substance: NIRMATRELVIR\RITONAVIR
     Indication: COVID-19 treatment
     Dosage: UNK
     Dates: start: 20230323
  2. QUETIAPINE [Concomitant]
     Active Substance: QUETIAPINE
     Dosage: 0.5 DF

REACTIONS (6)
  - Dizziness [Unknown]
  - Vision blurred [Unknown]
  - Nausea [Unknown]
  - Anxiety [Unknown]
  - Malaise [Unknown]
  - Disturbance in attention [Unknown]
